FAERS Safety Report 6084463-4 (Version None)
Quarter: 2009Q1

REPORT INFORMATION
  Report Type: 
  Country: None (occurrence: None)
  Receive Date: 20090219
  Receipt Date: 20090205
  Transmission Date: 20090719
  Serious: Yes (Death)
  Sender: FDA-Public Use
  Company Number: FR-GENENTECH-275616

PATIENT
  Sex: Male

DRUGS (9)
  1. RITUXIMAB [Suspect]
     Indication: NON-HODGKIN'S LYMPHOMA
     Dosage: 760 MG, UNK
     Route: 042
     Dates: start: 20081110, end: 20081201
  2. VINCRISTINE [Suspect]
     Indication: NON-HODGKIN'S LYMPHOMA
     Dosage: 2 MG, UNK
     Route: 042
     Dates: start: 20081111, end: 20081202
  3. METHOTREXATE [Suspect]
     Indication: NON-HODGKIN'S LYMPHOMA
     Dosage: 6000 MG, UNK
     Route: 042
     Dates: start: 20081111, end: 20081202
  4. DOXORUBICIN HCL [Suspect]
     Indication: NON-HODGKIN'S LYMPHOMA
     Dosage: 120 MG, UNK
     Route: 042
     Dates: start: 20081112, end: 20081203
  5. CYCLOPHOSPHAMIDE [Suspect]
     Indication: NON-HODGKIN'S LYMPHOMA
     Dosage: 1000 MG, UNK
     Route: 042
     Dates: start: 20081112, end: 20081205
  6. FOLINIC ACID [Suspect]
     Indication: NON-HODGKIN'S LYMPHOMA
     Dosage: 9200 MG, UNK
     Route: 042
     Dates: start: 20081112, end: 20081220
  7. PREDNISONE TAB [Suspect]
     Indication: NON-HODGKIN'S LYMPHOMA
     Dosage: 120 MG, UNK
     Route: 048
     Dates: start: 20081110, end: 20081205
  8. DEPOCYT [Suspect]
     Indication: NON-HODGKIN'S LYMPHOMA
     Dosage: 50 MG, UNK
     Route: 042
     Dates: start: 20081112, end: 20081203
  9. METHYLPREDNISOLONE 4MG TAB [Suspect]
     Indication: NON-HODGKIN'S LYMPHOMA
     Dosage: 120 MG, UNK
     Route: 065

REACTIONS (2)
  - NEUTROPENIC INFECTION [None]
  - RENAL FAILURE [None]
